FAERS Safety Report 23878390 (Version 1)
Quarter: 2024Q2

REPORT INFORMATION
  Report Type: Report from Study
  Country: US (occurrence: None)
  Receive Date: 20240521
  Receipt Date: 20240521
  Transmission Date: 20240716
  Serious: Yes (Hospitalization, Other)
  Sender: FDA-Public Use
  Company Number: 2024A113100

PATIENT
  Age: 67 Year
  Sex: Female

DRUGS (3)
  1. ANDEXANET ALFA [Suspect]
     Active Substance: ANDEXANET ALFA
     Indication: Procoagulant therapy
     Dosage: LOW DOSE
     Route: 040
  2. APIXABAN [Concomitant]
     Active Substance: APIXABAN
     Indication: Deep vein thrombosis
  3. 4F-PCC [Concomitant]
     Dosage: 25 UNITS/KG (~2,000 UNITS)

REACTIONS (4)
  - Deep vein thrombosis [Unknown]
  - Spontaneous cerebrospinal fluid leak syndrome [Unknown]
  - Urinary tract infection [Unknown]
  - Cerebral salt-wasting syndrome [Unknown]
